FAERS Safety Report 9804988 (Version 2)
Quarter: 2014Q1

REPORT INFORMATION
  Report Type: Report from Study
  Country: US (occurrence: US)
  Receive Date: 20140109
  Receipt Date: 20140109
  Transmission Date: 20141002
  Serious: Yes (Other)
  Sender: FDA-Public Use
  Company Number: US-ROCHE-1291587

PATIENT
  Age: 54 Year
  Sex: Male
  Weight: 83.54 kg

DRUGS (3)
  1. PEGASYS [Suspect]
     Indication: HEPATITIS C
     Route: 065
     Dates: start: 20130913
  2. PEGASYS [Suspect]
     Route: 065
     Dates: start: 20131019, end: 20131223
  3. COPEGUS [Suspect]
     Indication: HEPATITIS C
     Route: 048
     Dates: start: 20130913, end: 20131223

REACTIONS (2)
  - White blood cell count decreased [Recovering/Resolving]
  - Drug ineffective [Unknown]
